FAERS Safety Report 21053042 (Version 2)
Quarter: 2022Q3

REPORT INFORMATION
  Report Type: Report from Study
  Country: BR (occurrence: BR)
  Receive Date: 20220707
  Receipt Date: 20220722
  Transmission Date: 20221027
  Serious: Yes (Other)
  Sender: FDA-Public Use
  Company Number: BR-JNJFOC-20220664035

PATIENT
  Age: 83 Year
  Sex: Female
  Weight: 68 kg

DRUGS (15)
  1. ERDAFITINIB [Suspect]
     Active Substance: ERDAFITINIB
     Indication: Transitional cell carcinoma
     Route: 048
     Dates: start: 20220208, end: 20220223
  2. ERDAFITINIB [Suspect]
     Active Substance: ERDAFITINIB
     Route: 048
     Dates: start: 20220224, end: 20220307
  3. ERDAFITINIB [Suspect]
     Active Substance: ERDAFITINIB
     Route: 048
     Dates: start: 20220315, end: 20220320
  4. ERDAFITINIB [Suspect]
     Active Substance: ERDAFITINIB
     Route: 048
     Dates: start: 20220322, end: 20220504
  5. ALPRAZOLAM [Concomitant]
     Active Substance: ALPRAZOLAM
     Indication: Anxiety
     Dosage: 1 CP
     Route: 065
     Dates: start: 1995
  6. DOMPERIDONE [Concomitant]
     Active Substance: DOMPERIDONE
     Indication: Dyspepsia
     Dosage: 1 CP
     Dates: start: 20220406
  7. PANTOPRAZOLE [Concomitant]
     Active Substance: PANTOPRAZOLE
     Indication: Dyspepsia
     Dates: start: 20220406
  8. METOPROLOL TARTRATE [Concomitant]
     Active Substance: METOPROLOL TARTRATE
     Indication: Angina pectoris
     Dosage: 1 CP
     Dates: start: 1995
  9. SEVELAMER [Concomitant]
     Active Substance: SEVELAMER
     Indication: Hyperphosphataemia
     Dosage: 1 CP
     Dates: start: 20220225, end: 20220308
  10. SEVELAMER [Concomitant]
     Active Substance: SEVELAMER
     Dosage: 2 CP
     Dates: start: 20220309, end: 20220324
  11. SEVELAMER [Concomitant]
     Active Substance: SEVELAMER
     Dosage: 1 CP
     Dates: start: 20220419, end: 20220511
  12. SUSTRATE [Concomitant]
     Active Substance: PROPATYL NITRATE
     Indication: Angina pectoris
     Dosage: 1 CP
     Dates: start: 1995
  13. TRIMEBUTINE MALEATE [Concomitant]
     Active Substance: TRIMEBUTINE MALEATE
     Indication: Diverticulitis
     Dosage: 1 CP
     Dates: start: 2017, end: 20220211
  14. TRIMEBUTINE MALEATE [Concomitant]
     Active Substance: TRIMEBUTINE MALEATE
     Dosage: 1 CP
     Dates: start: 20220419
  15. UREA [Concomitant]
     Active Substance: UREA
     Indication: Palmar-plantar erythrodysaesthesia syndrome
     Route: 061
     Dates: start: 20220315

REACTIONS (1)
  - Maculopathy [Recovered/Resolved]

NARRATIVE: CASE EVENT DATE: 20220501
